FAERS Safety Report 14804118 (Version 1)
Quarter: 2018Q2

REPORT INFORMATION
  Report Type: Spontaneous
  Country: US (occurrence: US)
  Receive Date: 20180425
  Receipt Date: 20180425
  Transmission Date: 20180711
  Serious: Yes (Life-Threatening, Hospitalization, Other)
  Sender: FDA-Public Use
  Company Number: US-LUPIN PHARMACEUTICALS INC.-2018-03103

PATIENT
  Age: 3 Year

DRUGS (2)
  1. CLONAZEPAM. [Suspect]
     Active Substance: CLONAZEPAM
     Indication: PRODUCT USED FOR UNKNOWN INDICATION
     Dosage: 1-6 0.5 MG TABLETS
     Route: 048
  2. LAMOTRIGINE. [Suspect]
     Active Substance: LAMOTRIGINE
     Indication: PRODUCT USED FOR UNKNOWN INDICATION
     Dosage: PRESUMPTIVELY INGESTING 7-16, 25 MG LAMOTRIGINE DISINTEGRATING TABLETS ; IN TOTAL
     Route: 048

REACTIONS (3)
  - Toxicity to various agents [Recovered/Resolved]
  - Accidental exposure to product [Recovered/Resolved]
  - Generalised tonic-clonic seizure [Recovered/Resolved]
